FAERS Safety Report 8834781 (Version 1)
Quarter: 2012Q4

REPORT INFORMATION
  Report Type: 
  Country: US (occurrence: US)
  Receive Date: 20121010
  Receipt Date: 20121010
  Transmission Date: 20130627
  Serious: Yes (Life-Threatening, Hospitalization, Other)
  Sender: FDA-Public Use
  Company Number: US-GLAXOSMITHKLINE-A0996131A

PATIENT
  Age: 69 Year
  Sex: Female

DRUGS (7)
  1. ARZERRA [Suspect]
     Indication: CHRONIC LYMPHOCYTIC LEUKAEMIA
     Route: 042
     Dates: start: 20120320
  2. SYNTHROID [Concomitant]
  3. SIMVASTATIN [Concomitant]
  4. LEXAPRO [Concomitant]
  5. LASIX [Concomitant]
  6. ASPIRIN [Concomitant]
  7. ALBUTEROL [Concomitant]

REACTIONS (4)
  - Cardio-respiratory arrest [Recovered/Resolved]
  - Circulatory collapse [Recovered/Resolved]
  - Ventricular fibrillation [Recovered/Resolved]
  - Dizziness [Recovered/Resolved]
